FAERS Safety Report 12405615 (Version 1)
Quarter: 2016Q2

REPORT INFORMATION
  Report Type: Spontaneous
  Country: US (occurrence: None)
  Receive Date: 20160525
  Receipt Date: 20160525
  Transmission Date: 20160815
  Serious: Yes (Other)
  Sender: FDA-Public Use
  Company Number: None

PATIENT
  Age: 26 Year
  Sex: Female
  Weight: 126.55 kg

DRUGS (7)
  1. ZOLOFT [Concomitant]
     Active Substance: SERTRALINE HYDROCHLORIDE
  2. COUMADIN [Concomitant]
     Active Substance: WARFARIN SODIUM
  3. WELLBUTRIN RS [Concomitant]
  4. METFORMIN [Concomitant]
     Active Substance: METFORMIN HYDROCHLORIDE
  5. BACLOFEN. [Concomitant]
     Active Substance: BACLOFEN
  6. GABAPENTIN. [Concomitant]
     Active Substance: GABAPENTIN
  7. TYSABRI [Suspect]
     Active Substance: NATALIZUMAB
     Indication: MULTIPLE SCLEROSIS
     Dosage: 300 MG IV Q 4 WEEKS
     Route: 042
     Dates: start: 20130515, end: 20160226

REACTIONS (4)
  - Physical assault [None]
  - Accident at work [None]
  - Abdominal injury [None]
  - Renal cell carcinoma [None]

NARRATIVE: CASE EVENT DATE: 20150910
